FAERS Safety Report 9202637 (Version 1)
Quarter: 2013Q2

REPORT INFORMATION
  Report Type: Spontaneous
  Country: US (occurrence: US)
  Receive Date: 20130401
  Receipt Date: 20130401
  Transmission Date: 20140414
  Serious: Yes (Other)
  Sender: FDA-Public Use
  Company Number: US-ABBOTT-13P-163-1068744-00

PATIENT
  Age: 58 Year
  Sex: Male

DRUGS (8)
  1. RITONAVIR [Suspect]
     Indication: HIV INFECTION
  2. TACROLIMUS [Suspect]
     Indication: IMMUNOSUPPRESSANT DRUG THERAPY
  3. TACROLIMUS [Suspect]
     Route: 048
  4. TACROLIMUS [Suspect]
     Route: 048
  5. EMTRICITABINE [Concomitant]
     Indication: HIV INFECTION
  6. METHYLPREDISOLONE [Concomitant]
     Indication: IMMUNOSUPPRESSANT DRUG THERAPY
     Route: 042
  7. PREDNISONE [Concomitant]
     Indication: IMMUNOSUPPRESSANT DRUG THERAPY
     Route: 048
  8. MYCOPHENOLATE MOFETIL [Concomitant]
     Indication: IMMUNOSUPPRESSANT DRUG THERAPY

REACTIONS (1)
  - Toxicity to various agents [Recovered/Resolved]
